FAERS Safety Report 12146642 (Version 1)
Quarter: 2016Q1

REPORT INFORMATION
  Report Type: Spontaneous
  Country: ES (occurrence: ES)
  Receive Date: 20160304
  Receipt Date: 20160304
  Transmission Date: 20160526
  Serious: Yes (Hospitalization)
  Sender: FDA-Public Use
  Company Number: ES-FRESENIUS KABI-FK201601106

PATIENT

DRUGS (2)
  1. INDOMETHACIN (MANUFACTURER UNKNOWN) [Suspect]
     Active Substance: INDOMETHACIN
     Indication: PRODUCT USED FOR UNKNOWN INDICATION
  2. INDOMETHACIN (MANUFACTURER UNKNOWN) [Suspect]
     Active Substance: INDOMETHACIN
     Indication: EXPOSURE DURING PREGNANCY
     Route: 064

REACTIONS (2)
  - Foetal exposure during pregnancy [Recovered/Resolved]
  - Ductus arteriosus premature closure [Recovered/Resolved]
